FAERS Safety Report 10204646 (Version 1)
Quarter: 2014Q2

REPORT INFORMATION
  Report Type: Spontaneous
  Country: US (occurrence: None)
  Receive Date: 20140527
  Receipt Date: 20140527
  Transmission Date: 20141212
  Serious: Yes (Life-Threatening)
  Sender: FDA-Public Use
  Company Number: FK201401865

PATIENT
  Age: 41 Year
  Sex: Male

DRUGS (2)
  1. DOXYCYCLINE FOR INJECTION (MANUFACTURER UNKNOWN) (DOXYCYCLINE HYCLATE) (DOXYCYCLINE HYCLATE) [Suspect]
     Indication: LEPTOSPIROSIS
  2. PIPERACILLIN/TAZOBACTAM [Suspect]
     Indication: LEPTOSPIROSIS

REACTIONS (6)
  - Acute respiratory distress syndrome [None]
  - Septic shock [None]
  - Jarisch-Herxheimer reaction [None]
  - Renal failure [None]
  - Metabolic acidosis [None]
  - Renal failure [None]
